FAERS Safety Report 13861450 (Version 2)
Quarter: 2017Q3

REPORT INFORMATION
  Report Type: Spontaneous
  Country: JP (occurrence: JP)
  Receive Date: 20170811
  Receipt Date: 20170815
  Transmission Date: 20171127
  Serious: Yes (Hospitalization, Other)
  Sender: FDA-Public Use
  Company Number: JP-ALLERGAN-1706367US

PATIENT
  Age: 35 Year
  Sex: Male

DRUGS (9)
  1. ASENAPINE MALEATE - BP [Suspect]
     Active Substance: ASENAPINE MALEATE
     Dosage: 10 MG, QD
     Route: 060
  2. BIPERIDEN [Concomitant]
     Active Substance: BIPERIDEN
     Indication: PRODUCT USED FOR UNKNOWN INDICATION
     Dosage: 1 DF, TID
     Route: 065
  3. ASENAPINE MALEATE - BP [Suspect]
     Active Substance: ASENAPINE MALEATE
     Dosage: 10 MG, BID
     Route: 060
     Dates: start: 20161229
  4. XEPLION [Concomitant]
     Active Substance: PALIPERIDONE PALMITATE
     Indication: PRODUCT USED FOR UNKNOWN INDICATION
     Route: 065
  5. OLANZAPINE. [Concomitant]
     Active Substance: OLANZAPINE
     Indication: PRODUCT USED FOR UNKNOWN INDICATION
     Dosage: 1 DF, QPM
     Route: 065
  6. BLONANSERIN [Concomitant]
     Active Substance: BLONANSERIN
     Indication: PRODUCT USED FOR UNKNOWN INDICATION
     Dosage: 8 MG, TID
     Route: 065
  7. INVEGA [Concomitant]
     Active Substance: PALIPERIDONE
     Indication: PRODUCT USED FOR UNKNOWN INDICATION
     Dosage: UNK
     Route: 065
  8. ASENAPINE MALEATE - BP [Suspect]
     Active Substance: ASENAPINE MALEATE
     Indication: SCHIZOPHRENIA
     Dosage: 5 MG, BID
     Route: 060
     Dates: start: 20161215, end: 20161228
  9. CLONAZEPAM. [Concomitant]
     Active Substance: CLONAZEPAM
     Indication: PRODUCT USED FOR UNKNOWN INDICATION
     Dosage: 2 MG, TID
     Route: 065

REACTIONS (18)
  - Fall [Unknown]
  - Foreign body sensation in eyes [Not Recovered/Not Resolved]
  - Accommodation disorder [Unknown]
  - Vision blurred [Unknown]
  - Drug effect incomplete [Unknown]
  - Loss of consciousness [Not Recovered/Not Resolved]
  - Strabismus [Unknown]
  - Eyelid retraction [Unknown]
  - Somnolence [Unknown]
  - Aggression [Unknown]
  - Anal incontinence [Unknown]
  - Panic reaction [Unknown]
  - Subdural haematoma [Unknown]
  - Extrapyramidal disorder [Unknown]
  - Speech disorder [Unknown]
  - Oculogyric crisis [Not Recovered/Not Resolved]
  - Mental impairment [Unknown]
  - Urine output increased [Unknown]

NARRATIVE: CASE EVENT DATE: 201612
